FAERS Safety Report 5620033-7 (Version None)
Quarter: 2008Q1

REPORT INFORMATION
  Report Type: 
  Country: None (occurrence: None)
  Receive Date: 20080208
  Receipt Date: 20080131
  Transmission Date: 20080703
  Serious: Yes (Hospitalization)
  Sender: FDA-Public Use
  Company Number: GB-JNJFOC-20080103815

PATIENT
  Age: 47 Year
  Sex: Female

DRUGS (7)
  1. HALOPERIDOL [Suspect]
     Indication: ANTIEMETIC SUPPORTIVE CARE
     Route: 058
  2. HALOPERIDOL [Suspect]
     Indication: DRUG USE FOR UNKNOWN INDICATION
     Route: 048
  3. CYCLIZINE [Interacting]
     Indication: ANTIEMETIC SUPPORTIVE CARE
     Route: 058
  4. FLUOXETINE [Suspect]
     Indication: DEPRESSION
     Route: 048
  5. LEVOMEPROMAZINE [Suspect]
     Indication: ANTIEMETIC SUPPORTIVE CARE
     Route: 048
  6. OXYCODONE HCL [Concomitant]
     Route: 058
  7. OXYCODONE HCL [Concomitant]
     Route: 058

REACTIONS (2)
  - AKATHISIA [None]
  - DRUG INTERACTION [None]
